FAERS Safety Report 8125428-8 (Version None)
Quarter: 2012Q1

REPORT INFORMATION
  Report Type: 
  Country: None (occurrence: None)
  Receive Date: 20120209
  Receipt Date: 20120130
  Transmission Date: 20120608
  Serious: Yes (Other)
  Sender: FDA-Public Use
  Company Number: SK-BAXTER-2012BH003074

PATIENT
  Sex: Female

DRUGS (13)
  1. METIPRANOLOL [Concomitant]
     Indication: HYPERTENSION
     Route: 065
  2. METFORMIN HCL [Concomitant]
     Indication: DIABETES MELLITUS
     Route: 065
  3. ASCORBIC ACID [Concomitant]
     Indication: PRODUCT USED FOR UNKNOWN INDICATION
     Route: 065
  4. PREDNISONUM [Concomitant]
     Indication: PRODUCT USED FOR UNKNOWN INDICATION
     Route: 065
  5. DIOSMIN [Concomitant]
     Indication: PROPHYLAXIS
     Route: 065
  6. INDAPAMIDE [Suspect]
     Indication: HYPERTENSION
     Route: 065
  7. PERINDOPRIL ERBUMINE [Suspect]
     Indication: HYPERTENSION
     Route: 065
  8. METHIMAZOLE [Concomitant]
     Indication: PRODUCT USED FOR UNKNOWN INDICATION
     Route: 065
  9. OMEPRAZOLE [Concomitant]
     Indication: ANTACID THERAPY
     Route: 065
  10. GAMMAGARD LIQUID [Suspect]
     Indication: IDIOPATHIC THROMBOCYTOPENIC PURPURA
     Route: 042
     Dates: start: 20111206, end: 20111209
  11. CALCIUM D3 ^STADA^ [Concomitant]
     Indication: PRODUCT USED FOR UNKNOWN INDICATION
     Route: 065
  12. HESPERIDIN [Concomitant]
     Indication: PROPHYLAXIS
     Route: 065
  13. WARFARIN SODIUM [Concomitant]
     Indication: ANTICOAGULANT THERAPY
     Route: 065

REACTIONS (1)
  - LIVER FUNCTION TEST ABNORMAL [None]
